FAERS Safety Report 7042268-1 (Version None)
Quarter: 2010Q4

REPORT INFORMATION
  Report Type: 
  Country: None (occurrence: None)
  Receive Date: 20101013
  Receipt Date: 20100609
  Transmission Date: 20110411
  Serious: No
  Sender: FDA-Public Use
  Company Number: US-ASTRAZENECA-2010SE12249

PATIENT
  Age: 27191 Day
  Sex: Male

DRUGS (10)
  1. SYMBICORT [Suspect]
     Indication: ASTHMA
     Dosage: TOTAL DAILY DOSE 640 UG
     Route: 055
     Dates: start: 20100108, end: 20100111
  2. SYMBICORT [Suspect]
     Indication: CHRONIC OBSTRUCTIVE PULMONARY DISEASE
     Dosage: TOTAL DAILY DOSE 640 UG
     Route: 055
     Dates: start: 20100108, end: 20100111
  3. SYMBICORT [Suspect]
     Dosage: TOTAL DAILY DOSE 640 UG
     Route: 055
     Dates: start: 20100310
  4. SYMBICORT [Suspect]
     Dosage: TOTAL DAILY DOSE 640 UG
     Route: 055
     Dates: start: 20100310
  5. CLONIDINE [Concomitant]
     Indication: HYPERTENSION
  6. ROBAXIN [Concomitant]
  7. ALBUTEROL [Concomitant]
  8. BENICAR [Concomitant]
     Indication: HYPERTENSION
     Dosage: 40/25 MG DAILY
  9. IBUPROFEN [Concomitant]
  10. COMBIVENT [Concomitant]
     Dosage: PRN

REACTIONS (5)
  - COUGH [None]
  - DRUG DOSE OMISSION [None]
  - EAR INFECTION [None]
  - FUNGAL INFECTION [None]
  - PAIN IN JAW [None]
